FAERS Safety Report 6033824-8 (Version None)
Quarter: 2009Q1

REPORT INFORMATION
  Report Type: 
  Country: None (occurrence: None)
  Receive Date: 20090112
  Receipt Date: 20090108
  Transmission Date: 20090719
  Serious: Yes (Hospitalization)
  Sender: FDA-Public Use
  Company Number: GB-JNJFOC-20090101130

PATIENT
  Age: 54 Year
  Sex: Female
  Weight: 76 kg

DRUGS (6)
  1. FENTANYL-100 [Suspect]
     Indication: PROCEDURAL PAIN
     Route: 062
  2. CHLORPHENTERMINE 65MG TAB [Concomitant]
     Indication: PRURITUS
     Route: 030
  3. FLUOXETINE [Concomitant]
     Indication: DEPRESSION
     Route: 048
  4. LANSOPRAZOLE [Concomitant]
     Indication: HIATUS HERNIA
     Route: 048
  5. TIBOLONE [Concomitant]
     Indication: HORMONE REPLACEMENT THERAPY
     Route: 048
  6. ZOPICLONE [Concomitant]
     Indication: SLEEP DISORDER
     Route: 048

REACTIONS (2)
  - ASPIRATION [None]
  - PROCEDURAL PAIN [None]
